FAERS Safety Report 13292378 (Version 3)
Quarter: 2017Q2

REPORT INFORMATION
  Report Type: Spontaneous
  Country: PE (occurrence: PE)
  Receive Date: 20170303
  Receipt Date: 20170530
  Transmission Date: 20170830
  Serious: Yes (Death, Other)
  Sender: FDA-Public Use
  Company Number: PE-SA-2017SA034504

PATIENT
  Age: 10 Year
  Sex: Female
  Weight: 24.5 kg

DRUGS (3)
  1. AMOXICILLIN/CLAVULANIC ACID [Suspect]
     Active Substance: AMOXICILLIN\CLAVULANIC ACID
     Indication: SINUSITIS
     Route: 065
  2. CHLORPHENIRAMINE. [Concomitant]
     Active Substance: CHLORPHENIRAMINE
     Indication: PREMEDICATION
  3. CEREZYME [Suspect]
     Active Substance: IMIGLUCERASE
     Indication: GAUCHER^S DISEASE TYPE I
     Route: 041
     Dates: start: 20160317, end: 20170220

REACTIONS (10)
  - Pyrexia [Unknown]
  - Internal haemorrhage [Fatal]
  - Abdominal discomfort [Unknown]
  - Fatigue [Unknown]
  - Nasal congestion [Not Recovered/Not Resolved]
  - Vomiting [Unknown]
  - Cardio-respiratory arrest [Fatal]
  - Sinusitis [Not Recovered/Not Resolved]
  - Dyspnoea [Unknown]
  - Hepatitis [Not Recovered/Not Resolved]

NARRATIVE: CASE EVENT DATE: 201607
